FAERS Safety Report 21026451 (Version 1)
Quarter: 2022Q2

REPORT INFORMATION
  Report Type: Spontaneous
  Country: US (occurrence: None)
  Receive Date: 20220629
  Receipt Date: 20220629
  Transmission Date: 20220721
  Serious: Yes (Hospitalization)
  Sender: FDA-Public Use
  Company Number: None

PATIENT
  Age: 50 Year
  Sex: Female

DRUGS (1)
  1. ENBREL [Suspect]
     Active Substance: ETANERCEPT
     Dates: start: 202205

REACTIONS (3)
  - Autoimmune hepatitis [None]
  - Cholelithiasis [None]
  - Hepatic enzyme increased [None]

NARRATIVE: CASE EVENT DATE: 20220610
